FAERS Safety Report 8463203-5 (Version None)
Quarter: 2012Q2

REPORT INFORMATION
  Report Type: 
  Country: None (occurrence: None)
  Receive Date: 20120625
  Receipt Date: 20120615
  Transmission Date: 20120825
  Serious: Yes (Hospitalization)
  Sender: FDA-Public Use
  Company Number: AT-PFIZER INC-2012149906

PATIENT
  Age: 85 Year
  Sex: Female
  Weight: 49 kg

DRUGS (3)
  1. AMIODARONE HYDROCHLORIDE [Suspect]
     Dosage: 2 DF, 3X/DAY
     Route: 065
     Dates: start: 20120529, end: 20120601
  2. PANTOPRAZOLE SODIUM [Suspect]
     Dosage: 20 MG, 1X/DAY
     Route: 065
  3. ASPIRIN [Suspect]
     Dosage: 100 MG, 1X/DAY

REACTIONS (2)
  - GASTRITIS [None]
  - LIVER DISORDER [None]
